FAERS Safety Report 17819988 (Version 1)
Quarter: 2020Q2

REPORT INFORMATION
  Report Type: Spontaneous
  Country: US (occurrence: US)
  Receive Date: 20200525
  Receipt Date: 20200525
  Transmission Date: 20200714
  Serious: No
  Sender: FDA-Public Use
  Company Number: US-ACCORD-123822

PATIENT
  Sex: Female

DRUGS (1)
  1. FLUOROURACIL ACCORD [Suspect]
     Active Substance: FLUOROURACIL
     Indication: PAGET^S DISEASE OF THE VULVA

REACTIONS (3)
  - Off label use [Unknown]
  - Injection site pain [Unknown]
  - Product use issue [Unknown]
